FAERS Safety Report 24090836 (Version 1)
Quarter: 2024Q3

REPORT INFORMATION
  Report Type: Spontaneous
  Country: CN (occurrence: CN)
  Receive Date: 20240715
  Receipt Date: 20240715
  Transmission Date: 20241017
  Serious: Yes (Hospitalization)
  Sender: ELI LILLY AND CO
  Company Number: CN-Merck Healthcare KGaA-2024036880

PATIENT
  Age: 46 Year
  Sex: Male
  Weight: 48 kg

DRUGS (5)
  1. ERBITUX [Suspect]
     Active Substance: CETUXIMAB
     Indication: Nasal cavity cancer
     Dosage: 400 MG, UNK
     Route: 041
     Dates: start: 20240614, end: 20240626
  2. PACLITAXEL [Suspect]
     Active Substance: PACLITAXEL
     Indication: Nasal cavity cancer
     Dosage: 300 MG, UNK
     Route: 041
     Dates: start: 20240614, end: 20240614
  3. CISPLATIN [Suspect]
     Active Substance: CISPLATIN
     Indication: Nasal cavity cancer
     Dosage: 30 MG, UNK
     Route: 041
     Dates: start: 20240614, end: 20240614
  4. SODIUM CHLORIDE [Concomitant]
     Active Substance: SODIUM CHLORIDE
     Indication: Medication dilution
     Dosage: 100 ML, UNK
     Route: 041
     Dates: start: 20240614, end: 20240616
  5. SODIUM CHLORIDE [Concomitant]
     Active Substance: SODIUM CHLORIDE
     Dosage: 250 ML, UNK
     Route: 041
     Dates: start: 20240614, end: 20240626

REACTIONS (3)
  - Myelosuppression [Recovering/Resolving]
  - White blood cell count decreased [Recovering/Resolving]
  - Neutrophil count decreased [Recovering/Resolving]

NARRATIVE: CASE EVENT DATE: 20240627
